FAERS Safety Report 12044343 (Version 1)
Quarter: 2016Q1

REPORT INFORMATION
  Report Type: Report from Study
  Country: US (occurrence: US)
  Receive Date: 20160208
  Receipt Date: 20160208
  Transmission Date: 20160526
  Serious: Yes (Hospitalization, Other)
  Sender: FDA-Public Use
  Company Number: US-ABBVIE-15P-163-1345490-00

PATIENT
  Age: 52 Year
  Sex: Female
  Weight: 57.66 kg

DRUGS (1)
  1. HUMIRA [Suspect]
     Active Substance: ADALIMUMAB
     Indication: CROHN^S DISEASE
     Route: 058
     Dates: start: 20140611, end: 201501

REACTIONS (4)
  - Haemorrhage [Recovered/Resolved]
  - Intestinal resection [Recovered/Resolved]
  - Ileostomy [Recovering/Resolving]
  - Hernia repair [Recovering/Resolving]

NARRATIVE: CASE EVENT DATE: 201501
